FAERS Safety Report 23367983 (Version 6)
Quarter: 2024Q4

REPORT INFORMATION
  Report Type: Report from Study
  Country: IL (occurrence: IL)
  Receive Date: 20240105
  Receipt Date: 20241127
  Transmission Date: 20250114
  Serious: Yes (Hospitalization, Other)
  Sender: ABBVIE
  Company Number: IL-ABBVIE-5570529

PATIENT
  Age: 66 Year
  Sex: Male

DRUGS (2)
  1. SKYRIZI [Suspect]
     Active Substance: RISANKIZUMAB-RZAA
     Indication: Psoriasis
     Dosage: FORM STRENGTH: 150 MILLIGRAM
     Route: 058
     Dates: start: 20231019
  2. SKYRIZI [Suspect]
     Active Substance: RISANKIZUMAB-RZAA
     Dosage: FORM STRENGTH: 150 MILLIGRAM
     Route: 058
     Dates: start: 202401, end: 20241120

REACTIONS (6)
  - Metastases to lung [Unknown]
  - Metastatic malignant melanoma [Unknown]
  - Psoriasis [Not Recovered/Not Resolved]
  - Device issue [Unknown]
  - Oedema peripheral [Recovering/Resolving]
  - Melanoma recurrent [Unknown]

NARRATIVE: CASE EVENT DATE: 20230101
